FAERS Safety Report 11565472 (Version 2)
Quarter: 2015Q4

REPORT INFORMATION
  Report Type: Spontaneous
  Country: US (occurrence: US)
  Receive Date: 20150916
  Receipt Date: 20151027
  Transmission Date: 20160304
  Serious: No
  Sender: FDA-Public Use
  Company Number: US-ELI_LILLY_AND_COMPANY-US200904006515

PATIENT
  Age: 70 Year
  Sex: Female

DRUGS (2)
  1. FORTEO [Suspect]
     Active Substance: TERIPARATIDE
     Dosage: 20 UG, DAILY (1/D)
     Route: 065
  2. FORTEO [Suspect]
     Active Substance: TERIPARATIDE
     Indication: OSTEOPOROSIS
     Dosage: 20 UG, DAILY (1/D)
     Route: 065
     Dates: start: 20090424

REACTIONS (5)
  - Injection site bruising [Recovering/Resolving]
  - Injection site haemorrhage [Recovering/Resolving]
  - Rash generalised [Unknown]
  - Injection site erythema [Recovering/Resolving]
  - Rash pruritic [Unknown]

NARRATIVE: CASE EVENT DATE: 20090424
